FAERS Safety Report 4712496-6 (Version None)
Quarter: 2005Q2

REPORT INFORMATION
  Report Type: 
  Country: None (occurrence: None)
  Receive Date: 20050629
  Receipt Date: 20050308
  Transmission Date: 20051028
  Serious: No
  Sender: FDA-Public Use
  Company Number: 05P-163-0293110-00

PATIENT
  Age: 53 Year
  Sex: Female
  Weight: 58.9676 kg

DRUGS (10)
  1. HUMIRA [Suspect]
     Indication: RHEUMATOID ARTHRITIS
     Dosage: 40 MG, 1 IN 2 WK, SUBCUTANEOUS
     Route: 058
     Dates: start: 20040301
  2. METHOTREXATE [Concomitant]
  3. HYDROXYCHLOROQUINE PHOSPHATE [Concomitant]
  4. MELOXICAM [Concomitant]
  5. PROFENEX [Concomitant]
  6. FOLINIC ACID [Concomitant]
  7. CETIRIZINE HYDROCHLORIDE [Concomitant]
  8. SINGULAIR [Concomitant]
  9. FLUXETINE [Concomitant]
  10. FOLIC ACID [Concomitant]

REACTIONS (5)
  - DYSPNOEA EXERTIONAL [None]
  - FATIGUE [None]
  - PARAESTHESIA [None]
  - PHARYNGOLARYNGEAL PAIN [None]
  - RASH [None]
